FAERS Safety Report 11272875 (Version 6)
Quarter: 2016Q1

REPORT INFORMATION
  Report Type: Spontaneous
  Country: US (occurrence: US)
  Receive Date: 20150715
  Receipt Date: 20160126
  Transmission Date: 20160525
  Serious: Yes (Other)
  Sender: FDA-Public Use
  Company Number: US-PFIZER INC-2015231879

PATIENT
  Age: 73 Year
  Sex: Female
  Weight: 88.89 kg

DRUGS (5)
  1. IBRANCE [Suspect]
     Active Substance: PALBOCICLIB
     Indication: BREAST CANCER
     Dosage: 125 MG, CYCLIC (FOR 21 DAYS EVERY 28 DAYS CYCLE)
     Route: 048
     Dates: start: 20150528
  2. IBRANCE [Suspect]
     Active Substance: PALBOCICLIB
     Dosage: UNK
  3. IBRANCE [Suspect]
     Active Substance: PALBOCICLIB
     Dosage: UNK
  4. IBRANCE [Suspect]
     Active Substance: PALBOCICLIB
     Dosage: UNK
  5. IBRANCE [Suspect]
     Active Substance: PALBOCICLIB
     Dosage: 100 MG, CYCLIC (DAY 1-21 Q 28 DAYS)
     Route: 048
     Dates: start: 20150624, end: 20160105

REACTIONS (14)
  - Feeling cold [Unknown]
  - Hypertension [Recovering/Resolving]
  - Dizziness [Unknown]
  - Neutropenia [Unknown]
  - Anaphylactic reaction [Unknown]
  - Alopecia [Unknown]
  - Epistaxis [Unknown]
  - Paraesthesia [Unknown]
  - Nasal congestion [Unknown]
  - Tremor [Unknown]
  - Rhinorrhoea [Unknown]
  - Nausea [Unknown]
  - Abdominal pain upper [Not Recovered/Not Resolved]
  - Arthritis [Not Recovered/Not Resolved]

NARRATIVE: CASE EVENT DATE: 20150708
